FAERS Safety Report 4379247-9 (Version None)
Quarter: 2004Q2

REPORT INFORMATION
  Report Type: 
  Country: None (occurrence: None)
  Receive Date: 20040610
  Receipt Date: 20040601
  Transmission Date: 20050107
  Serious: No
  Sender: FDA-Public Use
  Company Number: JP-JNJFOC-20040506141

PATIENT
  Age: 40 Year
  Sex: Female

DRUGS (2)
  1. ITRACONAZOLE [Suspect]
     Indication: ONYCHOMYCOSIS
     Dosage: 400 MG, IN 1 DAY, ORAL
     Route: 048
     Dates: start: 20040409, end: 20040415
  2. ITRACONAZOLE [Suspect]
     Indication: ONYCHOMYCOSIS
     Dosage: 400 MG, IN 1 DAY, ORAL
     Route: 048
     Dates: start: 20040507, end: 20040513

REACTIONS (1)
  - RESPIRATORY DISTRESS [None]
